FAERS Safety Report 25836138 (Version 2)
Quarter: 2025Q4

REPORT INFORMATION
  Report Type: Spontaneous
  Country: IN (occurrence: IN)
  Receive Date: 20250923
  Receipt Date: 20251001
  Transmission Date: 20260118
  Serious: Yes (Other)
  Sender: NOVARTIS
  Company Number: IN-002147023-NVSC2025IN143529

PATIENT
  Age: 48 Year
  Sex: Female

DRUGS (2)
  1. RIBOCICLIB [Suspect]
     Active Substance: RIBOCICLIB
     Indication: Breast cancer
     Dosage: 600 MG, QD
     Route: 048
  2. ACYCLOVIR [Concomitant]
     Active Substance: ACYCLOVIR
     Indication: Product used for unknown indication
     Dosage: UNK
     Route: 065
     Dates: start: 202409

REACTIONS (15)
  - Cerebral infarction [Unknown]
  - Metastases to liver [Unknown]
  - Metastases to lymph nodes [Unknown]
  - Metastases to bone [Unknown]
  - Metastases to lung [Unknown]
  - Neutropenia [Unknown]
  - Hypertension [Unknown]
  - Uterine enlargement [Unknown]
  - Uterine leiomyoma [Unknown]
  - Mucosal hypertrophy [Unknown]
  - Sinusitis [Unknown]
  - Pain [Unknown]
  - Pyrexia [Unknown]
  - Maxillofacial pain [Unknown]
  - Impaired healing [Unknown]

NARRATIVE: CASE EVENT DATE: 20220201
